FAERS Safety Report 6047544-7 (Version None)
Quarter: 2009Q1

REPORT INFORMATION
  Report Type: 
  Country: None (occurrence: None)
  Receive Date: 20090123
  Receipt Date: 20090113
  Transmission Date: 20090719
  Serious: Yes (Death, Other)
  Sender: FDA-Public Use
  Company Number: US-RANBAXY-2009US-20850

PATIENT

DRUGS (4)
  1. VERAPAMIL [Suspect]
     Indication: SUICIDAL IDEATION
     Dosage: UNK, UNK
     Route: 048
  2. LABETALOL HCL [Suspect]
     Indication: SUICIDAL IDEATION
     Route: 048
  3. CLONIDINE HCL [Suspect]
     Indication: SUICIDAL IDEATION
     Route: 048
  4. PROPRANOLOL [Suspect]
     Indication: SUICIDAL IDEATION
     Route: 048

REACTIONS (1)
  - COMPLETED SUICIDE [None]
